FAERS Safety Report 23469949 (Version 2)
Quarter: 2024Q1

REPORT INFORMATION
  Report Type: Spontaneous
  Country: CN (occurrence: None)
  Receive Date: 20240202
  Receipt Date: 20240304
  Transmission Date: 20240410
  Serious: Yes (Death, Hospitalization, Other)
  Sender: FDA-Public Use
  Company Number: 2024A006945

PATIENT

DRUGS (1)
  1. IMFINZI [Suspect]
     Active Substance: DURVALUMAB

REACTIONS (6)
  - Death [Fatal]
  - Intestinal obstruction [Unknown]
  - Metastases to central nervous system [Unknown]
  - Asthenia [Unknown]
  - Rash [Recovered/Resolved]
  - Pruritus [Unknown]
